FAERS Safety Report 24673682 (Version 1)
Quarter: 2024Q4

REPORT INFORMATION
  Report Type: Spontaneous
  Country: FR (occurrence: FR)
  Receive Date: 20241128
  Receipt Date: 20241128
  Transmission Date: 20250115
  Serious: Yes (Hospitalization, Other)
  Sender: SANDOZ
  Company Number: FR-AUROBINDO-AUR-APL-2018-024890

PATIENT
  Age: 38 Year
  Sex: Female

DRUGS (7)
  1. CHLORHEXIDINE [Suspect]
     Active Substance: CHLORHEXIDINE
     Indication: Cryoglobulinaemia
     Dosage: UNK, 3 TIMES A DAY
     Route: 065
  2. CHLORHEXIDINE [Suspect]
     Active Substance: CHLORHEXIDINE
     Indication: Infection prophylaxis
  3. METHYLPREDNISOLONE [Suspect]
     Active Substance: METHYLPREDNISOLONE
     Dosage: 3 BOLUSES OF 1 GRAM
     Route: 040
  4. METHYLPREDNISOLONE [Suspect]
     Active Substance: METHYLPREDNISOLONE
     Dosage: 3 BOLUSES OF 1 GRAM
     Route: 042
  5. METHYLPREDNISOLONE [Suspect]
     Active Substance: METHYLPREDNISOLONE
     Indication: Cryoglobulinaemia
     Dosage: 3 DF, UNK
     Route: 065
  6. PREDNISOLONE [Suspect]
     Active Substance: PREDNISOLONE
     Indication: Cryoglobulinaemia
     Dosage: 0.5 MG/KG, UNK
     Route: 065
  7. RITUXIMAB [Suspect]
     Active Substance: RITUXIMAB
     Indication: Cryoglobulinaemia
     Dosage: 375 G/M2, QW
     Route: 065

REACTIONS (15)
  - Staphylococcal sepsis [Unknown]
  - Acute kidney injury [Unknown]
  - Endocarditis [Unknown]
  - Renal vasculitis [Unknown]
  - Bacteraemia [Recovered/Resolved]
  - Dyspnoea [Unknown]
  - Generalised oedema [Unknown]
  - Left ventricular dysfunction [Unknown]
  - Pyrexia [Unknown]
  - Parvimonas test positive [Unknown]
  - Streptococcus test positive [Unknown]
  - Veillonella test positive [Unknown]
  - Bacterial disease carrier [Unknown]
  - Off label use [Unknown]
  - Product use in unapproved indication [Unknown]
